FAERS Safety Report 8427104-0 (Version None)
Quarter: 2012Q2

REPORT INFORMATION
  Report Type: 
  Country: None (occurrence: None)
  Receive Date: 20120611
  Receipt Date: 20120530
  Transmission Date: 20120825
  Serious: Yes (Other)
  Sender: FDA-Public Use
  Company Number: US-ASTRAZENECA-2012SE35136

PATIENT
  Sex: Female

DRUGS (13)
  1. LAMICTAL [Concomitant]
  2. LYRICA [Concomitant]
  3. PROTONIX [Concomitant]
  4. ZOMIG-ZMT [Suspect]
     Route: 048
  5. LEXAPRO [Concomitant]
  6. KLOR-CON M10 [Concomitant]
     Dosage: 10 MEQ, PARTICLES, 1 DAILY
  7. ADDERALL 5 [Concomitant]
  8. DIOVAN [Concomitant]
  9. HYDROXYZINE [Concomitant]
  10. RESTORIL [Concomitant]
  11. SAPHRIS [Concomitant]
     Route: 060
  12. SINGULAIR [Concomitant]
  13. FLONASE [Concomitant]
     Dosage: 50 MCG/ACTUATION SPRAY, 2 DAILY
     Route: 045

REACTIONS (6)
  - GASTROOESOPHAGEAL REFLUX DISEASE [None]
  - DEPRESSION [None]
  - BIPOLAR DISORDER [None]
  - INTERVERTEBRAL DISC DISORDER [None]
  - CONVULSION [None]
  - MIGRAINE [None]
